FAERS Safety Report 10926814 (Version 1)
Quarter: 2015Q1

REPORT INFORMATION
  Report Type: Spontaneous
  Country: KR (occurrence: None)
  Receive Date: 20150316
  Receipt Date: 20150316
  Transmission Date: 20150721
  Serious: Yes (Hospitalization)
  Sender: FDA-Public Use
  Company Number: FK201501210

PATIENT
  Age: 62 Year
  Sex: Male

DRUGS (6)
  1. FLUOROURACIL. [Suspect]
     Active Substance: FLUOROURACIL
     Indication: COLORECTAL CANCER
     Dosage: 1 IN 2 WK
     Route: 040
  2. IRINOTECAN (MANUFACTURER UNKNOWN) (IRINOTECAN) (IRINOTECAN) [Suspect]
     Active Substance: IRINOTECAN
     Indication: METASTASES TO LUNG
     Dosage: 1 IN 2 WK
  3. LEUCOVORIN CALCIUM (MANUFACTURER UNKNOWN) (LEUCOVORIN CALCIUM) (LEUCOVORIN CALCIUM) [Suspect]
     Active Substance: LEUCOVORIN CALCIUM
     Indication: METASTASES TO LUNG
     Dosage: 1 IN 2 WK
  4. FLUOROURACIL. [Suspect]
     Active Substance: FLUOROURACIL
     Indication: METASTASES TO LUNG
     Dosage: 1 IN 2 WK
     Route: 040
  5. IRINOTECAN (MANUFACTURER UNKNOWN) (IRINOTECAN) (IRINOTECAN) [Suspect]
     Active Substance: IRINOTECAN
     Indication: COLORECTAL CANCER
     Dosage: 1 IN 2 WK
  6. LEUCOVORIN CALCIUM (MANUFACTURER UNKNOWN) (LEUCOVORIN CALCIUM) (LEUCOVORIN CALCIUM) [Suspect]
     Active Substance: LEUCOVORIN CALCIUM
     Indication: COLORECTAL CANCER
     Dosage: 1 IN 2 WK

REACTIONS (2)
  - Organising pneumonia [None]
  - Drug interaction [None]
